FAERS Safety Report 8175401-9 (Version None)
Quarter: 2012Q1

REPORT INFORMATION
  Report Type: 
  Country: None (occurrence: None)
  Receive Date: 20120229
  Receipt Date: 20120213
  Transmission Date: 20120608
  Serious: Yes (Other)
  Sender: FDA-Public Use
  Company Number: US-ORAPHARMA-QUINORA-2012-008

PATIENT
  Sex: Male

DRUGS (1)
  1. ARESTIN [Suspect]
     Indication: PERIODONTAL DISEASE
     Dosage: 1 UNK, ONE TIME DOSE
     Route: 048
     Dates: start: 20120206, end: 20120206

REACTIONS (1)
  - VIITH NERVE PARALYSIS [None]
